FAERS Safety Report 8474832-7 (Version None)
Quarter: 2012Q2

REPORT INFORMATION
  Report Type: 
  Country: None (occurrence: None)
  Receive Date: 20120628
  Receipt Date: 20120620
  Transmission Date: 20120825
  Serious: Yes (Other)
  Sender: FDA-Public Use
  Company Number: US-BRISTOL-MYERS SQUIBB COMPANY-16598641

PATIENT
  Age: 58 Year
  Sex: Female

DRUGS (2)
  1. ORENCIA [Suspect]
     Indication: RHEUMATOID ARTHRITIS
     Route: 042
     Dates: start: 20110501
  2. SIMVASTATIN [Suspect]
     Dates: start: 20120301, end: 20120301

REACTIONS (3)
  - MALAISE [None]
  - LIVER FUNCTION TEST ABNORMAL [None]
  - MYOPATHY [None]
